FAERS Safety Report 9752158 (Version 1)
Quarter: 2013Q4

REPORT INFORMATION
  Report Type: Spontaneous
  Country: US (occurrence: None)
  Receive Date: 20131212
  Receipt Date: 20131212
  Transmission Date: 20140711
  Serious: No
  Sender: FDA-Public Use
  Company Number: None

PATIENT
  Age: 35 Year
  Sex: Female
  Weight: 58.97 kg

DRUGS (2)
  1. CONCERTA [Suspect]
     Indication: ATTENTION DEFICIT/HYPERACTIVITY DISORDER
     Route: 048
     Dates: start: 20131122, end: 20131211
  2. CONCERTA [Suspect]
     Route: 048
     Dates: start: 20130620, end: 20131122

REACTIONS (5)
  - Fatigue [None]
  - Disturbance in attention [None]
  - Tremor [None]
  - Headache [None]
  - Product substitution issue [None]
